FAERS Safety Report 12583342 (Version 1)
Quarter: 2016Q3

REPORT INFORMATION
  Report Type: Spontaneous
  Country: US (occurrence: US)
  Receive Date: 20160722
  Receipt Date: 20160722
  Transmission Date: 20161109
  Serious: Yes (Hospitalization)
  Sender: FDA-Public Use
  Company Number: PHEH2016US017910

PATIENT
  Sex: Male

DRUGS (2)
  1. GLEEVEC [Suspect]
     Active Substance: IMATINIB MESYLATE
     Indication: HODGKIN^S DISEASE
     Dosage: 100 MG, TID
     Route: 065
  2. GLEEVEC [Suspect]
     Active Substance: IMATINIB MESYLATE
     Indication: TOXICITY TO VARIOUS AGENTS

REACTIONS (6)
  - Vomiting [Unknown]
  - Wrong technique in product usage process [Unknown]
  - Product use issue [Unknown]
  - Malabsorption [Unknown]
  - Gastric disorder [Unknown]
  - Pneumothorax [Unknown]
